FAERS Safety Report 19053161 (Version 1)
Quarter: 2021Q1

REPORT INFORMATION
  Report Type: Spontaneous
  Country: US (occurrence: US)
  Receive Date: 20210324
  Receipt Date: 20210324
  Transmission Date: 20210420
  Serious: Yes (Life-Threatening, Other)
  Sender: FDA-Public Use
  Company Number: US-SA-2021SA096198

PATIENT
  Age: 56 Year
  Sex: Male
  Weight: 82.6 kg

DRUGS (3)
  1. VITAMIN D3 [Concomitant]
     Active Substance: CHOLECALCIFEROL
     Indication: VITAMIN D DEFICIENCY
     Dosage: 1000 UNK, QD
     Route: 048
     Dates: start: 20130920
  2. GABAPENTIN. [Concomitant]
     Active Substance: GABAPENTIN
     Indication: NEUROPATHY PERIPHERAL
     Dosage: 300 MG, Q3D
     Route: 048
     Dates: start: 20190124
  3. DOCETAXEL. [Suspect]
     Active Substance: DOCETAXEL
     Indication: MYXOFIBROSARCOMA
     Dosage: 75 MG/M2, Q3W
     Route: 042
     Dates: start: 20210301

REACTIONS (1)
  - Neutrophil count decreased [Not Recovered/Not Resolved]

NARRATIVE: CASE EVENT DATE: 20210308
